FAERS Safety Report 18660781 (Version 1)
Quarter: 2020Q4

REPORT INFORMATION
  Report Type: Spontaneous
  Country: JP (occurrence: JP)
  Receive Date: 20201224
  Receipt Date: 20201224
  Transmission Date: 20210114
  Serious: Yes (Hospitalization, Other)
  Sender: FDA-Public Use
  Company Number: JP-ABBVIE-20P-087-3707001-00

PATIENT
  Age: 53 Year
  Sex: Female

DRUGS (1)
  1. LEUPLIN [Suspect]
     Active Substance: LEUPROLIDE ACETATE
     Indication: ADENOMYOSIS
     Dosage: 1.88 MILLIGRAM
     Route: 058

REACTIONS (2)
  - Hypertension [Recovering/Resolving]
  - Aortic dissection [Recovering/Resolving]
